FAERS Safety Report 21752364 (Version 1)
Quarter: 2022Q4

REPORT INFORMATION
  Report Type: Spontaneous
  Country: CA (occurrence: CA)
  Receive Date: 20221220
  Receipt Date: 20221220
  Transmission Date: 20230112
  Serious: Yes (Other)
  Sender: FDA-Public Use
  Company Number: CA-BAXTER-2022BAX030789

PATIENT
  Age: 71 Year
  Sex: Male

DRUGS (3)
  1. DOXORUBICIN [Suspect]
     Active Substance: DOXORUBICIN
     Indication: Transcatheter arterial chemoembolisation
     Dosage: 100 MILLIGRAM
     Route: 013
  2. ETHIODIZED OIL [Suspect]
     Active Substance: ETHIODIZED OIL
     Indication: Transcatheter arterial chemoembolisation
     Dosage: 8 ML, 1 EVERY 1 DAYS
     Route: 013
  3. GELATIN SPONGE, ABSORBABLE [Suspect]
     Active Substance: GELATIN
     Indication: Product used for unknown indication
     Route: 065

REACTIONS (2)
  - Skin injury [Recovered/Resolved with Sequelae]
  - Embolism [Recovered/Resolved with Sequelae]
